FAERS Safety Report 25746133 (Version 1)
Quarter: 2025Q3

REPORT INFORMATION
  Report Type: Spontaneous
  Country: EU (occurrence: EU)
  Receive Date: 20250901
  Receipt Date: 20250901
  Transmission Date: 20251021
  Serious: Yes (Death)
  Sender: ACCORD
  Company Number: None

PATIENT
  Age: 58 Year
  Sex: Female
  Weight: 87 kg

DRUGS (10)
  1. PEMETREXED [Suspect]
     Active Substance: PEMETREXED
     Indication: Lung adenocarcinoma
     Dates: start: 20250703, end: 20250703
  2. CARBOPLATIN [Concomitant]
     Active Substance: CARBOPLATIN
     Indication: Lung adenocarcinoma
     Dates: start: 20250703, end: 20250703
  3. ENOXAPARIN SODIUM [Concomitant]
     Active Substance: ENOXAPARIN SODIUM
     Indication: Pulmonary embolism
     Dosage: 8000 IU (80 MG)/0.8 ML, SOLUTION FOR INJECTION IN PRE-FILLED SYRINGE
     Dates: start: 202504
  4. FOSTER [Concomitant]
     Active Substance: BECLOMETHASONE\FORMOTEROL
     Indication: Asthma
     Dosage: 100 MICROGRAMS/6 MICROGRAMS FOR INHALATION POWDER
  5. PEMBROLIZUMAB [Concomitant]
     Active Substance: PEMBROLIZUMAB
     Indication: Lung adenocarcinoma
     Dates: start: 20250703, end: 20250703
  6. NOACID [Concomitant]
     Indication: Gastrooesophageal reflux disease
     Dosage: STRENGTH: 40 MG
  7. INDAPAMIDE\PERINDOPRIL [Concomitant]
     Active Substance: INDAPAMIDE\PERINDOPRIL
     Indication: Hypertension
  8. ROSUVASTATIN [Concomitant]
     Active Substance: ROSUVASTATIN
     Indication: Hypercholesterolaemia
     Dosage: STRENGTH: 20 MG
     Dates: start: 202504
  9. FILGRASTIM [Concomitant]
     Active Substance: FILGRASTIM
     Indication: Prophylaxis
     Dates: start: 20250704, end: 20250709
  10. ZOLEDRONIC ACID [Concomitant]
     Active Substance: ZOLEDRONIC ACID
     Indication: Lung adenocarcinoma
     Dates: start: 20250703, end: 20250703

REACTIONS (5)
  - Acute kidney injury [Fatal]
  - Anaemia [Fatal]
  - Diarrhoea [Fatal]
  - Neutropenia [Fatal]
  - Aphthous ulcer [Unknown]

NARRATIVE: CASE EVENT DATE: 20250705
